FAERS Safety Report 7122326-3 (Version None)
Quarter: 2010Q4

REPORT INFORMATION
  Report Type: 
  Country: None (occurrence: None)
  Receive Date: 20101124
  Receipt Date: 20101118
  Transmission Date: 20110411
  Serious: Yes (Other)
  Sender: FDA-Public Use
  Company Number: GB-PFIZER INC-2010113112

PATIENT
  Sex: Female

DRUGS (2)
  1. DEPO-PROVERA [Suspect]
     Indication: OFF LABEL USE
     Dosage: SINGLE INJECTION
     Dates: start: 20100728
  2. DEPO-PROVERA [Suspect]
     Indication: ENDOMETRIOSIS

REACTIONS (7)
  - ALOPECIA [None]
  - ARTHRALGIA [None]
  - BONE PAIN [None]
  - HAIR TEXTURE ABNORMAL [None]
  - HEADACHE [None]
  - HOT FLUSH [None]
  - MENSTRUAL DISORDER [None]
